FAERS Safety Report 5594494-6 (Version None)
Quarter: 2008Q1

REPORT INFORMATION
  Report Type: 
  Country: None (occurrence: None)
  Receive Date: 20080117
  Receipt Date: 20080108
  Transmission Date: 20080703
  Serious: Yes (Disabling, Other)
  Sender: FDA-Public Use
  Company Number: NZ-ALLERGAN-0800499US

PATIENT
  Sex: Male

DRUGS (2)
  1. BIMATOPROST UNK [Suspect]
     Indication: INTRAOCULAR PRESSURE INCREASED
     Route: 047
  2. TIMOLOL MALEATE SOL UNSPECIFID [Suspect]
     Indication: INTRAOCULAR PRESSURE INCREASED
     Route: 047

REACTIONS (3)
  - GLAUCOMATOUS OPTIC DISC ATROPHY [None]
  - INTRAOCULAR PRESSURE INCREASED [None]
  - VISUAL FIELD DEFECT [None]
